FAERS Safety Report 5951299-1 (Version None)
Quarter: 2008Q4

REPORT INFORMATION
  Report Type: 
  Country: None (occurrence: None)
  Receive Date: 20081111
  Receipt Date: 20081111
  Transmission Date: 20090506
  Serious: Yes (Hospitalization)
  Sender: FDA-Public Use
  Company Number: None

PATIENT
  Sex: Female
  Weight: 106 kg

DRUGS (4)
  1. FLUOROURACIL [Suspect]
     Dosage: 18465 MG
     Dates: end: 20081020
  2. BEVACIZUMAB (RHUMAB VEGF) [Suspect]
     Dosage: 1620 MG
     Dates: end: 20081020
  3. LEUCOVORIN CALCIUM [Suspect]
     Dosage: 2640 MG
     Dates: end: 20081020
  4. ELOXATIN [Suspect]
     Dosage: 555 MG
     Dates: end: 20081020

REACTIONS (6)
  - ABDOMINAL PAIN [None]
  - DEVICE MALFUNCTION [None]
  - ILEUS [None]
  - NAUSEA [None]
  - SMALL INTESTINAL OBSTRUCTION [None]
  - VOMITING [None]
